FAERS Safety Report 12359045 (Version 2)
Quarter: 2016Q2

REPORT INFORMATION
  Report Type: Spontaneous
  Country: US (occurrence: US)
  Receive Date: 20160512
  Receipt Date: 20160525
  Transmission Date: 20160815
  Serious: No
  Sender: FDA-Public Use
  Company Number: US-BAYER-2016-090473

PATIENT
  Age: 30 Year
  Sex: Female

DRUGS (1)
  1. FINACEA [Suspect]
     Active Substance: AZELAIC ACID
     Indication: ACNE
     Dosage: UNK
     Route: 061
     Dates: start: 20160504, end: 20160505

REACTIONS (3)
  - Product use issue [None]
  - Skin disorder [Unknown]
  - Acne [None]

NARRATIVE: CASE EVENT DATE: 20160504
